FAERS Safety Report 9647773 (Version 4)
Quarter: 2014Q2

REPORT INFORMATION
  Report Type: Spontaneous
  Country: IT (occurrence: IT)
  Receive Date: 20131028
  Receipt Date: 20140409
  Transmission Date: 20141212
  Serious: Yes (Hospitalization)
  Sender: FDA-Public Use
  Company Number: IT-RANBAXY-2013RR-74450

PATIENT
  Age: 81 Year
  Sex: Female

DRUGS (8)
  1. GABAPENTIN [Suspect]
     Indication: MUSCULOSKELETAL PAIN
     Dosage: 600 MG, DAILY
     Route: 048
     Dates: start: 20130915, end: 20130921
  2. LEXIL [Suspect]
     Indication: ANXIETY
     Dosage: 16.5 MG, DAILY
     Route: 048
     Dates: start: 20110921
  3. EUTIROX [Concomitant]
     Indication: PRODUCT USED FOR UNKNOWN INDICATION
     Dosage: UNK
     Route: 048
  4. PANTORC [Concomitant]
     Indication: PRODUCT USED FOR UNKNOWN INDICATION
     Dosage: UNK
     Route: 048
  5. DILATREND [Concomitant]
     Indication: PRODUCT USED FOR UNKNOWN INDICATION
     Dosage: UNK
     Route: 048
  6. LEVOPRAID [Concomitant]
     Indication: PRODUCT USED FOR UNKNOWN INDICATION
     Dosage: UNK
     Route: 048
  7. ELOPRAM [Concomitant]
     Indication: PRODUCT USED FOR UNKNOWN INDICATION
     Dosage: 30 DROPS
     Route: 048
  8. CO EFFERALGAN [Concomitant]
     Indication: PRODUCT USED FOR UNKNOWN INDICATION
     Dosage: 1590 MG, UNK
     Route: 048

REACTIONS (2)
  - Bradyphrenia [Recovered/Resolved]
  - Sopor [Recovered/Resolved]
